FAERS Safety Report 8375539-7 (Version None)
Quarter: 2012Q1

REPORT INFORMATION
  Report Type: 
  Country: None (occurrence: None)
  Receive Date: 20120323
  Receipt Date: 20110309
  Transmission Date: 20120608
  Serious: Yes (Other)
  Sender: FDA-Public Use
  Company Number: 163-21880-11031278

PATIENT
  Age: 80 Year
  Sex: Male

DRUGS (4)
  1. DOXAZOSIN MESYLATE [Concomitant]
  2. OMEPRAZOLE [Concomitant]
  3. OXYCONTIN [Concomitant]
  4. REVLIMID [Suspect]
     Indication: MULTIPLE MYELOMA
     Dosage: 25 MG, DAILY FOR 28 DAYS, PO
     Route: 048
     Dates: start: 20101115

REACTIONS (2)
  - PLATELET COUNT DECREASED [None]
  - STOMATITIS [None]
